FAERS Safety Report 6653394-0 (Version None)
Quarter: 2010Q1

REPORT INFORMATION
  Report Type: 
  Country: None (occurrence: None)
  Receive Date: 20100326
  Receipt Date: 20100323
  Transmission Date: 20100710
  Serious: Yes (Death)
  Sender: FDA-Public Use
  Company Number: GT-ROCHE-693153

PATIENT
  Age: 33 Year
  Sex: Male
  Weight: 216 kg

DRUGS (3)
  1. ACTEMRA [Suspect]
     Indication: RHEUMATOID ARTHRITIS
     Dosage: FORM: INFUSION
     Route: 042
     Dates: start: 20091001, end: 20100305
  2. METHOTREXATE [Concomitant]
     Indication: RHEUMATOID ARTHRITIS
     Route: 048
  3. PREDNISOLONE [Concomitant]
     Dosage: FREQUENCY: DAILY
     Route: 048

REACTIONS (1)
  - VENTRICULAR FIBRILLATION [None]
